FAERS Safety Report 13609404 (Version 2)
Quarter: 2017Q2

REPORT INFORMATION
  Report Type: Spontaneous
  Country: US (occurrence: US)
  Receive Date: 20170602
  Receipt Date: 20170605
  Transmission Date: 20170830
  Serious: No
  Sender: FDA-Public Use
  Company Number: US-PFIZER INC-2884139

PATIENT
  Age: 20 Year
  Sex: Female
  Weight: 54.4 kg

DRUGS (1)
  1. KETOROLAC TROMETHAMINE. [Suspect]
     Active Substance: KETOROLAC TROMETHAMINE
     Indication: PELVIC INFLAMMATORY DISEASE
     Dosage: MORE THAN ONCE, INTRAVENOUS OR SHOT
     Route: 050

REACTIONS (5)
  - Migraine [Not Recovered/Not Resolved]
  - Product quality issue [Unknown]
  - Dizziness [Unknown]
  - Poor quality drug administered [Unknown]
  - Fall [Unknown]

NARRATIVE: CASE EVENT DATE: 20150517
